FAERS Safety Report 6892645-4 (Version None)
Quarter: 2010Q3

REPORT INFORMATION
  Report Type: 
  Country: None (occurrence: None)
  Receive Date: 20100731
  Receipt Date: 20080808
  Transmission Date: 20110219
  Serious: No
  Sender: FDA-Public Use
  Company Number: US-PFIZER INC-2008067032

PATIENT
  Sex: Male
  Weight: 88.45 kg

DRUGS (5)
  1. GABAPENTIN [Suspect]
     Indication: NEURALGIA
     Route: 048
     Dates: start: 20060101
  2. GABAPENTIN [Suspect]
     Indication: NEUROPATHY PERIPHERAL
  3. TERAZOSIN HCL [Concomitant]
  4. DICLOFENAC DIETHYLAMINE [Concomitant]
  5. MULTI-VITAMINS [Concomitant]

REACTIONS (2)
  - HERPES ZOSTER [None]
  - PAIN [None]
